FAERS Safety Report 5499497-8 (Version None)
Quarter: 2007Q4

REPORT INFORMATION
  Report Type: 
  Country: None (occurrence: None)
  Receive Date: 20071026
  Receipt Date: 20071017
  Transmission Date: 20080405
  Serious: Yes (Other)
  Sender: FDA-Public Use
  Company Number: JP-ROCHE-525750

PATIENT
  Age: 59 Year
  Sex: Female

DRUGS (2)
  1. COPEGUS [Suspect]
     Indication: HEPATITIS C
     Dosage: DIVIDED INTO TWO DOSES.
     Route: 048
     Dates: start: 20070903, end: 20070928
  2. PEGASYS [Suspect]
     Indication: HEPATITIS C
     Route: 058
     Dates: start: 20070903, end: 20071001

REACTIONS (1)
  - GINGIVAL BLEEDING [None]
